FAERS Safety Report 16599339 (Version 3)
Quarter: 2020Q3

REPORT INFORMATION
  Report Type: Spontaneous
  Country: US (occurrence: US)
  Receive Date: 20190719
  Receipt Date: 20200416
  Transmission Date: 20201104
  Serious: No
  Sender: FDA-Public Use
  Company Number: US-FRESENIUS KABI-FK201908050

PATIENT
  Age: 45 Year
  Sex: Female
  Weight: 62.3 kg

DRUGS (26)
  1. MORPHINE [Concomitant]
     Active Substance: MORPHINE
     Indication: PAIN
     Route: 065
     Dates: start: 20170118
  2. OXYCODONE [Concomitant]
     Active Substance: OXYCODONE
     Indication: PAIN
     Route: 065
     Dates: start: 20161228
  3. SUCCINYLCHOLINE CHLORIDE. [Concomitant]
     Active Substance: SUCCINYLCHOLINE CHLORIDE
     Indication: SURGERY
     Route: 065
     Dates: start: 20190605
  4. LORAZEPAM. [Concomitant]
     Active Substance: LORAZEPAM
     Indication: SURGERY
     Route: 065
     Dates: start: 20190608
  5. LIDOCAINE HYDROCHLORIDE/PRILOCAINE HYDROCHLORIDE [Concomitant]
     Indication: CENTRAL VENOUS CATHETERISATION
     Route: 065
     Dates: start: 20170125
  6. DEXAMETHASONE ACETATE [Concomitant]
     Active Substance: DEXAMETHASONE ACETATE
     Indication: SURGERY
     Route: 065
     Dates: start: 20190605
  7. TISOTUMAB VEDOTIN. [Suspect]
     Active Substance: TISOTUMAB VEDOTIN
     Indication: CERVIX CANCER METASTATIC
     Route: 041
     Dates: start: 20190624
  8. OXYBUTYNIN HYDROCHLORIDE [Concomitant]
     Active Substance: OXYBUTYNIN CHLORIDE
     Indication: PROPHYLAXIS
     Route: 065
     Dates: start: 20170118
  9. PROCHLORPERAZINE EDISYLATE. [Concomitant]
     Active Substance: PROCHLORPERAZINE EDISYLATE
     Indication: NAUSEA
     Route: 065
     Dates: start: 20170303
  10. MACROGOL 3350 [Concomitant]
     Active Substance: POLYETHYLENE GLYCOL 3350
     Indication: CONSTIPATION
     Route: 065
     Dates: start: 20190608
  11. PROPOFOL. [Concomitant]
     Active Substance: PROPOFOL
     Indication: SURGERY
     Route: 065
     Dates: start: 20190605
  12. MAGNESIUM CARBONATE/ALUMINIUM HYDROXIDE GEL, DRIED [Concomitant]
     Indication: SURGERY
     Route: 065
     Dates: start: 20190605
  13. GLYCEROL/HYPROMELLOSE/MACROGOL [Concomitant]
     Indication: PROPHYLAXIS
     Route: 065
     Dates: start: 20190624
  14. OMEPRAZOLE. [Concomitant]
     Active Substance: OMEPRAZOLE
     Indication: GASTROOESOPHAGEAL REFLUX DISEASE
     Route: 065
     Dates: start: 20190114
  15. CARBOPLATIN (MANUFACTURER UNKNOWN) [Suspect]
     Active Substance: CARBOPLATIN
     Indication: CERVIX CANCER METASTATIC
     Dosage: 5 AUC
     Route: 041
     Dates: start: 20190624
  16. PARACETAMOL [Concomitant]
     Active Substance: ACETAMINOPHEN
     Indication: PAIN
     Route: 065
     Dates: start: 20170109
  17. DOCUSATE SODIUM/SENNA ALEXANDRINA [Concomitant]
     Indication: CONSTIPATION
     Route: 065
     Dates: start: 20190430
  18. MIDAZOLAM. [Concomitant]
     Active Substance: MIDAZOLAM
     Indication: SURGERY
     Route: 065
     Dates: start: 20190605
  19. ONDANSETRON HYDROCHLORIDE. [Concomitant]
     Active Substance: ONDANSETRON HYDROCHLORIDE
     Indication: NAUSEA
     Route: 065
     Dates: start: 20170105
  20. ONDANSETRON HYDROCHLORIDE. [Concomitant]
     Active Substance: ONDANSETRON HYDROCHLORIDE
     Indication: VOMITING
  21. BRIMONIDINE [Concomitant]
     Active Substance: BRIMONIDINE TARTRATE
     Indication: PROPHYLAXIS
     Route: 065
     Dates: start: 20190624
  22. PROCHLORPERAZINE EDISYLATE. [Concomitant]
     Active Substance: PROCHLORPERAZINE EDISYLATE
     Indication: VOMITING
  23. LIDOCAINE. [Concomitant]
     Active Substance: LIDOCAINE
     Indication: SURGERY
     Route: 065
     Dates: start: 20190605
  24. FENTANYL. [Concomitant]
     Active Substance: FENTANYL
     Indication: SURGERY
     Route: 065
     Dates: start: 20190605
  25. FENTANYL. [Concomitant]
     Active Substance: FENTANYL
     Dates: start: 20190608
  26. HYPROMELLOSE [Concomitant]
     Active Substance: HYPROMELLOSES
     Indication: SURGERY
     Route: 065
     Dates: start: 20190605

REACTIONS (1)
  - Dry eye [Recovered/Resolved]

NARRATIVE: CASE EVENT DATE: 20190628
